FAERS Safety Report 5298604-X (Version None)
Quarter: 2007Q2

REPORT INFORMATION
  Report Type: 
  Country: None (occurrence: None)
  Receive Date: 20070417
  Receipt Date: 20070410
  Transmission Date: 20071010
  Serious: Yes (Hospitalization, Other)
  Sender: FDA-Public Use
  Company Number: US-BAYER-200710892BCC

PATIENT
  Age: 52 Year
  Sex: Male
  Weight: 117 kg

DRUGS (10)
  1. EXTRA STRENGTH ALKA SELTZER [Suspect]
     Indication: ANTACID THERAPY
  2. ASPIRIN [Suspect]
     Indication: CARDIOVASCULAR EVENT PROPHYLAXIS
     Dosage: TOTAL DAILY DOSE: 325 MG  UNIT DOSE: 325 MG
     Route: 048
  3. ASPIRIN [Suspect]
     Indication: CARDIOVASCULAR EVENT PROPHYLAXIS
     Dosage: TOTAL DAILY DOSE: 325 MG  UNIT DOSE: 325 MG
     Route: 048
  4. FISH OIL [Suspect]
     Indication: DRUG USE FOR UNKNOWN INDICATION
  5. FIBER [Suspect]
     Indication: DRUG USE FOR UNKNOWN INDICATION
  6. BENICAR [Concomitant]
  7. ZETIA [Concomitant]
  8. NEXIUM [Concomitant]
  9. LUMAGEN [Concomitant]
  10. EYE DROPS (GLAUCOMA) [Concomitant]

REACTIONS (9)
  - ANAPHYLACTIC REACTION [None]
  - DIZZINESS [None]
  - HYPERGLYCAEMIA [None]
  - HYPERTENSION [None]
  - LIP SWELLING [None]
  - LIVER FUNCTION TEST ABNORMAL [None]
  - POLYCYTHAEMIA [None]
  - SWOLLEN TONGUE [None]
  - THROAT TIGHTNESS [None]
